FAERS Safety Report 9997825 (Version 1)
Quarter: 2014Q1

REPORT INFORMATION
  Report Type: Spontaneous
  Country: US (occurrence: None)
  Receive Date: 20140304
  Receipt Date: 20140304
  Transmission Date: 20141002
  Serious: Yes (Other)
  Sender: FDA-Public Use
  Company Number: RB-51027-2013

PATIENT
  Age: 30 Year
  Sex: Female

DRUGS (4)
  1. SUBOXONE [Suspect]
     Indication: DRUG DEPENDENCE
     Route: 060
     Dates: start: 2002
  2. BUPRENORPHINE [Suspect]
     Indication: DRUG DEPENDENCE
     Route: 060
     Dates: end: 20130301
  3. XANAX [Concomitant]
  4. KLONOPIN [Concomitant]

REACTIONS (3)
  - Convulsion [None]
  - Drug withdrawal syndrome [None]
  - Vomiting [None]
